FAERS Safety Report 10392536 (Version 2)
Quarter: 2014Q3

REPORT INFORMATION
  Report Type: Report from Study
  Country: AU (occurrence: AU)
  Receive Date: 20140819
  Receipt Date: 20140925
  Transmission Date: 20150326
  Serious: Yes (Other)
  Sender: FDA-Public Use
  Company Number: PHHY2014AU100888

PATIENT
  Sex: Male

DRUGS (1)
  1. SANDOSTATIN LAR DEPOT [Suspect]
     Active Substance: OCTREOTIDE ACETATE
     Indication: CARCINOID SYNDROME
     Dosage: 60 MG
     Route: 030
     Dates: start: 20131001

REACTIONS (3)
  - Product quality issue [Not Recovered/Not Resolved]
  - Panic attack [Not Recovered/Not Resolved]
  - Needle issue [Not Recovered/Not Resolved]
